FAERS Safety Report 9858114 (Version 1)
Quarter: 2014Q1

REPORT INFORMATION
  Report Type: Spontaneous
  Country: US (occurrence: None)
  Receive Date: 20140129
  Receipt Date: 20140129
  Transmission Date: 20141002
  Serious: Yes (Other)
  Sender: FDA-Public Use
  Company Number: None

PATIENT
  Age: 49 Year
  Sex: Male
  Weight: 124.74 kg

DRUGS (2)
  1. DULOXETINE [Suspect]
     Indication: BACK PAIN
     Route: 048
     Dates: start: 20140101, end: 20140128
  2. DULOXETINE [Suspect]
     Indication: ARTHROPATHY
     Route: 048
     Dates: start: 20140101, end: 20140128

REACTIONS (3)
  - Headache [None]
  - Drug effect decreased [None]
  - Product substitution issue [None]
